FAERS Safety Report 17583927 (Version 2)
Quarter: 2020Q2

REPORT INFORMATION
  Report Type: Spontaneous
  Country: GB (occurrence: GB)
  Receive Date: 20200326
  Receipt Date: 20200403
  Transmission Date: 20200713
  Serious: Yes (Life-Threatening)
  Sender: FDA-Public Use
  Company Number: GB-009507513-2003GBR007787

PATIENT
  Age: 49 Year
  Sex: Female
  Weight: 111 kg

DRUGS (23)
  1. FENTANYL. [Concomitant]
     Active Substance: FENTANYL
     Dosage: UNK
  2. PROPOFOL. [Concomitant]
     Active Substance: PROPOFOL
     Dosage: UNK
  3. GENTAMICIN SULFATE. [Concomitant]
     Active Substance: GENTAMICIN SULFATE
     Dosage: UNK
  4. CAPSAICIN. [Concomitant]
     Active Substance: CAPSAICIN
     Dosage: UNK
  5. ROCURONIUM BROMIDE. [Concomitant]
     Active Substance: ROCURONIUM BROMIDE
     Dosage: UNK
  6. RANITIDINE BISMUTH CITRATE [Concomitant]
     Active Substance: RANITIDINE BISMUTH CITRATE
     Dosage: UNK
  7. PREGABALIN. [Concomitant]
     Active Substance: PREGABALIN
     Dosage: UNK
  8. MORPHINE [Concomitant]
     Active Substance: MORPHINE
     Dosage: UNK
  9. DULOXETINE HYDROCHLORIDE. [Concomitant]
     Active Substance: DULOXETINE HYDROCHLORIDE
     Dosage: UNK
  10. DROPERIDOL. [Concomitant]
     Active Substance: DROPERIDOL
     Dosage: UNK
  11. CYCLIZINE [Concomitant]
     Active Substance: CYCLIZINE
     Dosage: UNK
  12. ACETAMINOPHEN. [Concomitant]
     Active Substance: ACETAMINOPHEN
     Dosage: UNK
  13. DIAZEPAM. [Concomitant]
     Active Substance: DIAZEPAM
     Dosage: UNK
  14. ESOMEPRAZOLE. [Concomitant]
     Active Substance: ESOMEPRAZOLE MAGNESIUM
     Dosage: UNK
  15. MIRTAZAPINE. [Concomitant]
     Active Substance: MIRTAZAPINE
     Dosage: UNK
  16. CODEINE HYDROCHLORIDE [Concomitant]
     Active Substance: CODEINE HYDROCHLORIDE
     Dosage: UNK
  17. SUGAMMADEX SODIUM [Suspect]
     Active Substance: SUGAMMADEX SODIUM
     Indication: NEUROMUSCULAR BLOCKADE REVERSAL
     Dosage: 200 MILLIGRAM
     Route: 042
     Dates: start: 20200304, end: 20200304
  18. MELOXICAM. [Concomitant]
     Active Substance: MELOXICAM
     Dosage: UNK
  19. DEXAMETHASONE. [Concomitant]
     Active Substance: DEXAMETHASONE
     Dosage: UNK
  20. FOSTAIR [Concomitant]
     Active Substance: BECLOMETHASONE\FORMOTEROL
     Dosage: UNK
  21. CITALOPRAM [Concomitant]
     Active Substance: CITALOPRAM HYDROBROMIDE
     Dosage: UNK
  22. BETMIGA [Concomitant]
     Active Substance: MIRABEGRON
     Dosage: UNK
  23. FUROSEMIDE. [Concomitant]
     Active Substance: FUROSEMIDE
     Dosage: UNK

REACTIONS (5)
  - Radial pulse abnormal [Recovered/Resolved]
  - Cardiac arrest [Recovered/Resolved]
  - Oxygen saturation decreased [Recovered/Resolved]
  - Sinus bradycardia [Recovered/Resolved]
  - Carotid pulse abnormal [Recovered/Resolved]

NARRATIVE: CASE EVENT DATE: 20200304
